FAERS Safety Report 8021660-2 (Version None)
Quarter: 2012Q1

REPORT INFORMATION
  Report Type: 
  Country: None (occurrence: None)
  Receive Date: 20120104
  Receipt Date: 20120102
  Transmission Date: 20120608
  Serious: Yes (Life-Threatening, Hospitalization)
  Sender: FDA-Public Use
  Company Number: PHHO2011FR17186

PATIENT
  Sex: Female
  Weight: 85 kg

DRUGS (3)
  1. LETROZOLE [Suspect]
     Indication: BREAST CANCER
     Dosage: 2.5 MG, DAILY
     Route: 048
     Dates: start: 20100104, end: 20111004
  2. CAPECITABINE [Concomitant]
     Indication: BREAST CANCER
     Dosage: 825 MG/M2, BID
     Route: 048
  3. TAMOXIFEN CITRATE [Concomitant]
     Indication: BREAST CANCER
     Dosage: 20 MG, DAILY

REACTIONS (1)
  - INTRACRANIAL ANEURYSM [None]
